FAERS Safety Report 6977364-8 (Version None)
Quarter: 2010Q3

REPORT INFORMATION
  Report Type: 
  Country: None (occurrence: None)
  Receive Date: 20100910
  Receipt Date: 20100831
  Transmission Date: 20110219
  Serious: Yes (Other)
  Sender: FDA-Public Use
  Company Number: US-PFIZER INC-2009300765

PATIENT
  Sex: Male

DRUGS (14)
  1. ZOLOFT [Suspect]
     Indication: ANXIETY
     Dosage: UNK
     Dates: start: 20080601, end: 20081001
  2. EFFEXOR [Suspect]
     Dosage: UNK
  3. PRISTIQ [Suspect]
     Dosage: UNK
  4. EFFEXOR XR [Suspect]
     Dosage: 37.5 MG, UNK
  5. EFFEXOR XR [Suspect]
     Dosage: 75 MG, UNK
  6. EFFEXOR XR [Suspect]
     Dosage: 150 MG, UNK
  7. EFFEXOR XR [Suspect]
     Dosage: 75 MG, UNK
  8. ZYPREXA [Suspect]
     Dosage: UNK
     Dates: start: 20080601, end: 20081001
  9. KLONOPIN [Suspect]
     Dosage: UNK
     Dates: start: 20100501
  10. PAXIL [Suspect]
     Dosage: UNK
  11. LUNESTA [Suspect]
     Indication: INSOMNIA
     Dosage: 2 MG, UNK
     Route: 048
     Dates: start: 20100601, end: 20100601
  12. LUNESTA [Suspect]
     Dosage: 4 MG, UNK
     Route: 048
     Dates: start: 20100601
  13. SEROQUEL [Concomitant]
     Indication: SLEEP APNOEA SYNDROME
     Dosage: UNK
  14. ATIVAN [Concomitant]
     Dosage: UNK
     Dates: end: 20100501

REACTIONS (10)
  - AGITATION [None]
  - AKATHISIA [None]
  - ANXIETY [None]
  - DEPENDENCE [None]
  - DRUG INEFFECTIVE [None]
  - FATIGUE [None]
  - INSOMNIA [None]
  - PSYCHOMOTOR HYPERACTIVITY [None]
  - RESTLESSNESS [None]
  - SOMNOLENCE [None]
